FAERS Safety Report 5748558-4 (Version None)
Quarter: 2008Q2

REPORT INFORMATION
  Report Type: 
  Country: None (occurrence: None)
  Receive Date: 20080523
  Receipt Date: 20080514
  Transmission Date: 20081010
  Serious: Yes (Other)
  Sender: FDA-Public Use
  Company Number: NO-PFIZER INC-2008042197

PATIENT
  Sex: Female

DRUGS (3)
  1. LYRICA [Suspect]
     Indication: GENERALISED ANXIETY DISORDER
     Route: 048
  2. IMOVANE [Concomitant]
     Route: 048
  3. LEVOTHYROXINE SODIUM [Concomitant]
     Route: 048

REACTIONS (2)
  - DRUG DEPENDENCE [None]
  - EUPHORIC MOOD [None]
